FAERS Safety Report 10563879 (Version 2)
Quarter: 2014Q4

REPORT INFORMATION
  Report Type: Spontaneous
  Country: US (occurrence: US)
  Receive Date: 20141104
  Receipt Date: 20141212
  Transmission Date: 20150529
  Serious: Yes (Other)
  Sender: FDA-Public Use
  Company Number: US-ABBVIE-14P-163-1303237-00

PATIENT
  Age: 60 Year
  Sex: Male

DRUGS (1)
  1. ANDROGEL [Suspect]
     Active Substance: TESTOSTERONE
     Indication: ASTHENIA
     Dosage: 1 PUMP
     Route: 061
     Dates: start: 201203

REACTIONS (10)
  - Coronary artery occlusion [Unknown]
  - Transient ischaemic attack [Unknown]
  - Economic problem [Unknown]
  - Bundle branch block [Unknown]
  - Pain [Unknown]
  - Anxiety [Unknown]
  - Coronary artery stenosis [Unknown]
  - Injury [Unknown]
  - Impaired work ability [Unknown]
  - Hypotension [Unknown]

NARRATIVE: CASE EVENT DATE: 201211
